FAERS Safety Report 9219769 (Version 2)
Quarter: 2013Q4

REPORT INFORMATION
  Report Type: Spontaneous
  Country: US (occurrence: None)
  Receive Date: 20120828
  Receipt Date: 20131217
  Transmission Date: 20140711
  Serious: Yes (Hospitalization)
  Sender: FDA-Public Use
  Company Number: 2012BH000936

PATIENT
  Age: 4 Year
  Sex: Male
  Weight: 17 kg

DRUGS (1)
  1. GAMMAGARD LIQUID (IMMUNOGLOBULIN, NORMAL HUMAN) (SOLUTION FOR INFUSI [Suspect]
     Indication: KAWASAKI^S DISEASE
     Dosage: (ONCE), IV? ? ? ?

REACTIONS (5)
  - Tachycardia [None]
  - Oxygen saturation decreased [None]
  - Vomiting [None]
  - Ocular hyperaemia [None]
  - Tongue disorder [None]
